FAERS Safety Report 9639316 (Version 2)
Quarter: 2013Q4

REPORT INFORMATION
  Report Type: Spontaneous
  Country: BE (occurrence: None)
  Receive Date: 20131010
  Receipt Date: 20131018
  Transmission Date: 20140711
  Serious: Yes (Other)
  Sender: FDA-Public Use
  Company Number: 2013038285

PATIENT
  Age: 75 Year
  Sex: Female

DRUGS (6)
  1. HIZENTRA [Suspect]
     Dosage: 1X/WEEK
     Route: 058
     Dates: start: 20130908
  2. SERETIDE [Concomitant]
  3. VENTOLIN [Concomitant]
  4. DIURETICS (DIURETICS) [Concomitant]
  5. VITAMINES-B12-C-ARON (VITAMINES-B12-C-ARON) [Concomitant]
  6. ADDITIVA CALCIUM (CALCIUM) [Concomitant]

REACTIONS (3)
  - Bronchial obstruction [None]
  - Asthma [None]
  - Oedema peripheral [None]
